FAERS Safety Report 7620601-7 (Version None)
Quarter: 2011Q3

REPORT INFORMATION
  Report Type: 
  Country: None (occurrence: None)
  Receive Date: 20110719
  Receipt Date: 20110706
  Transmission Date: 20111222
  Serious: Yes (Hospitalization)
  Sender: FDA-Public Use
  Company Number: UA-UCBSA-015270

PATIENT
  Sex: Female
  Weight: 90.4 kg

DRUGS (15)
  1. CDP870 [Suspect]
     Indication: RHEUMATOID ARTHRITIS
     Dosage: CDP870-50
     Route: 058
     Dates: start: 20060111, end: 20060503
  2. CDP870 [Suspect]
     Dosage: NBR OF DOSES: 16
     Route: 058
     Dates: start: 20091207, end: 20100708
  3. DICLOBERL [Concomitant]
     Route: 048
     Dates: start: 20091112, end: 20091123
  4. CORGLYCON [Concomitant]
     Indication: PLEURISY
     Route: 048
     Dates: start: 20091112, end: 20091123
  5. AUGMENTIN '125' [Concomitant]
     Indication: BRONCHITIS
     Route: 048
     Dates: start: 20070222, end: 20070228
  6. FUROSEMIDE [Concomitant]
     Indication: PLEURISY
     Route: 048
     Dates: start: 20091112, end: 20091123
  7. CDP870 [Suspect]
     Dosage: NBR OF DOSES: 91
     Route: 058
     Dates: start: 20060517, end: 20091112
  8. DICLOBERL [Concomitant]
     Indication: SYNOVITIS
     Route: 048
     Dates: start: 20050701, end: 20060921
  9. VIT B6 [Concomitant]
     Indication: ANTIBIOTIC PROPHYLAXIS
     Route: 048
     Dates: start: 20081015, end: 20090415
  10. METHOTREXATE [Concomitant]
     Indication: RHEUMATOID ARTHRITIS
     Route: 048
     Dates: start: 20050130
  11. DICLOBERL [Concomitant]
     Route: 048
     Dates: start: 20060921, end: 20090428
  12. DICLOBERL [Concomitant]
     Route: 048
     Dates: start: 20060921, end: 20090428
  13. DICLOBERL [Concomitant]
     Route: 048
     Dates: start: 20091112, end: 20091123
  14. HIDRALAZIN ISONICOTINAMIDE [Concomitant]
     Indication: ANTIBIOTIC PROPHYLAXIS
     Route: 048
     Dates: start: 20081015, end: 20090415
  15. DICLOBERL [Concomitant]
     Indication: RHEUMATOID ARTHRITIS
     Route: 048
     Dates: start: 20050701, end: 20060921

REACTIONS (1)
  - SYNOVITIS [None]
